FAERS Safety Report 9720185 (Version 1)
Quarter: 2013Q4

REPORT INFORMATION
  Report Type: Spontaneous
  Country: US (occurrence: US)
  Receive Date: 20131129
  Receipt Date: 20131129
  Transmission Date: 20140711
  Serious: Yes (Other)
  Sender: FDA-Public Use
  Company Number: US-GLENMARK GENERICS INC.-2013GMK007680

PATIENT
  Age: 42 Year
  Sex: Female

DRUGS (4)
  1. NORGESTIMATE AND ETHINYL ESTRADIOL [Suspect]
     Indication: POLYCYSTIC OVARIES
     Dosage: 1 DF, QD
     Route: 048
     Dates: start: 201310
  2. TIROSINT [Concomitant]
     Indication: THYROID THERAPY
     Dosage: 150 ?G, OD
     Route: 048
  3. PROMETHAZINE [Concomitant]
     Indication: FOOD ALLERGY
     Dosage: UNK
     Route: 048
  4. PAIN MEDICATION [Concomitant]
     Indication: INTERVERTEBRAL DISC PROTRUSION
     Dosage: UNK

REACTIONS (2)
  - Blood pressure increased [Not Recovered/Not Resolved]
  - Hyperhidrosis [Not Recovered/Not Resolved]
